FAERS Safety Report 14506347 (Version 1)
Quarter: 2018Q1

REPORT INFORMATION
  Report Type: Spontaneous
  Country: BE (occurrence: BE)
  Receive Date: 20180208
  Receipt Date: 20180208
  Transmission Date: 20180509
  Serious: Yes (Death, Hospitalization, Other)
  Sender: FDA-Public Use
  Company Number: BE-MYLANLABS-2018M1007869

PATIENT
  Age: 72 Year
  Sex: Male

DRUGS (2)
  1. OMEPRAZOLE. [Concomitant]
     Active Substance: OMEPRAZOLE
     Indication: ARTHRALGIA
     Dosage: UNK
     Route: 065
  2. NABUMETONE. [Suspect]
     Active Substance: NABUMETONE
     Indication: ARTHRALGIA
     Dosage: UNK
     Route: 065

REACTIONS (6)
  - Pulmonary fibrosis [Fatal]
  - Lymphadenopathy [Fatal]
  - Eosinophilic pneumonia [Fatal]
  - Paraesthesia oral [Unknown]
  - Drug reaction with eosinophilia and systemic symptoms [Fatal]
  - Lip swelling [Unknown]
